FAERS Safety Report 10928692 (Version 1)
Quarter: 2015Q1

REPORT INFORMATION
  Report Type: Spontaneous
  Country: US (occurrence: None)
  Receive Date: 20150318
  Receipt Date: 20150318
  Transmission Date: 20150721
  Serious: Yes (Hospitalization)
  Sender: FDA-Public Use
  Company Number: None

PATIENT
  Age: 82 Year
  Sex: Female

DRUGS (5)
  1. DIGOXIN. [Concomitant]
     Active Substance: DIGOXIN
  2. REVLIMID [Suspect]
     Active Substance: LENALIDOMIDE
     Indication: BLOOD DISORDER
     Dosage: 1 TAB
     Route: 048
     Dates: start: 201208, end: 201411
  3. FORTEO [Concomitant]
     Active Substance: TERIPARATIDE
  4. LEVOTHYROXINE [Concomitant]
     Active Substance: LEVOTHYROXINE
  5. HYDROXYUREA. [Concomitant]
     Active Substance: HYDROXYUREA

REACTIONS (3)
  - Pneumonia [None]
  - Cough [None]
  - Spinal fracture [None]

NARRATIVE: CASE EVENT DATE: 201311
